FAERS Safety Report 15171125 (Version 1)
Quarter: 2018Q3

REPORT INFORMATION
  Report Type: Spontaneous
  Country: US (occurrence: US)
  Receive Date: 20180720
  Receipt Date: 20180720
  Transmission Date: 20181010
  Serious: Yes (Other)
  Sender: FDA-Public Use
  Company Number: US-SAOL THERAPEUTICS-2018SAO00892

PATIENT
  Age: 15 Year
  Sex: Male

DRUGS (3)
  1. LIORESAL [Suspect]
     Active Substance: BACLOFEN
     Dosage: 900 ?G, \DAY
     Route: 037
     Dates: start: 20170119
  2. LIORESAL [Suspect]
     Active Substance: BACLOFEN
     Indication: MUSCLE SPASTICITY
     Dosage: 1425 ?G, \DAY
     Route: 037
     Dates: end: 20170119
  3. LIORESAL [Suspect]
     Active Substance: BACLOFEN
     Dosage: 1600 ?G, \DAY
     Route: 037

REACTIONS (8)
  - Irritability [Unknown]
  - Drug withdrawal syndrome [Unknown]
  - Device infusion issue [Unknown]
  - Paroxysmal sympathetic hyperactivity [Recovered/Resolved]
  - Abdominal distension [Unknown]
  - Agitation [Recovering/Resolving]
  - Muscle spasticity [Unknown]
  - Rash pruritic [Unknown]

NARRATIVE: CASE EVENT DATE: 20161115
